FAERS Safety Report 8394669-7 (Version None)
Quarter: 2012Q2

REPORT INFORMATION
  Report Type: 
  Country: None (occurrence: None)
  Receive Date: 20120530
  Receipt Date: 20120521
  Transmission Date: 20120825
  Serious: Yes (Other)
  Sender: FDA-Public Use
  Company Number: US-VERTEX PHARMACEUTICALS INC.-AE-2011-004065

PATIENT
  Sex: Female

DRUGS (5)
  1. PEGASYS [Concomitant]
     Indication: HEPATITIS C
     Route: 058
     Dates: start: 20111110
  2. RIBAVIRIN [Concomitant]
  3. RIBAVIRIN [Concomitant]
  4. RIBAVIRIN [Concomitant]
     Indication: HEPATITIS C
     Route: 048
     Dates: start: 20111110
  5. INCIVEK [Suspect]
     Indication: HEPATITIS C
     Route: 048
     Dates: start: 20111110, end: 20120202

REACTIONS (23)
  - VISION BLURRED [None]
  - DISTURBANCE IN ATTENTION [None]
  - ALOPECIA [None]
  - NASAL DISORDER [None]
  - DIARRHOEA [None]
  - ANAEMIA [None]
  - PAIN IN EXTREMITY [None]
  - SUICIDAL IDEATION [None]
  - DEPRESSION [None]
  - VOMITING [None]
  - AMNESIA [None]
  - ABDOMINAL DISTENSION [None]
  - RASH PRURITIC [None]
  - ORAL DISORDER [None]
  - SKIN EXFOLIATION [None]
  - HAEMORRHOIDS [None]
  - RECTAL HAEMORRHAGE [None]
  - FEELING ABNORMAL [None]
  - INSOMNIA [None]
  - FATIGUE [None]
  - NAUSEA [None]
  - CONSTIPATION [None]
  - PROCTALGIA [None]
